FAERS Safety Report 8890537 (Version 1)
Quarter: 2012Q4

REPORT INFORMATION
  Report Type: 
  Country: US (occurrence: US)
  Receive Date: 20121107
  Receipt Date: 20121107
  Transmission Date: 20130627
  Serious: No
  Sender: FDA-Public Use
  Company Number: US-PFIZER INC-2012274897

PATIENT
  Age: 14 Year
  Sex: Female
  Weight: 55.01 kg

DRUGS (1)
  1. GENOTROPIN [Suspect]
     Indication: SHORT STATURE
     Dosage: 2.6 mg, 1x/day
     Route: 058
     Dates: start: 20081017

REACTIONS (1)
  - Injection site reaction [Unknown]
